FAERS Safety Report 4548948-1 (Version None)
Quarter: 2004Q4

REPORT INFORMATION
  Report Type: 
  Country: None (occurrence: None)
  Receive Date: 20041227
  Receipt Date: 20040902
  Transmission Date: 20050328
  Serious: No
  Sender: FDA-Public Use
  Company Number: 04P-163-0272212-00

PATIENT
  Age: 53 Year
  Sex: Female
  Weight: 71.2147 kg

DRUGS (11)
  1. HUMIRA [Suspect]
     Indication: RHEUMATOID ARTHRITIS
     Dosage: 40 MG, 1 IN 2 WK, SUBCUTANEOUS
     Route: 058
     Dates: start: 20040727
  2. ASCORBIC ACID [Concomitant]
  3. LIDODERM [Concomitant]
  4. SULFALSALAZINE [Concomitant]
  5. BUCINDOLOL HYDROCHLORIDE [Concomitant]
  6. METHOTREXATE SODIUM [Concomitant]
  7. PREDNISONE [Concomitant]
  8. AMLODIPINE BESYLATE [Concomitant]
  9. FOLIC ACID [Concomitant]
  10. CALCIUM CARBONATE [Concomitant]
  11. MULTI-VITAMINS [Concomitant]

REACTIONS (2)
  - INJECTION SITE BURNING [None]
  - MEDICATION ERROR [None]
